FAERS Safety Report 6978781-2 (Version None)
Quarter: 2010Q3

REPORT INFORMATION
  Report Type: 
  Country: None (occurrence: None)
  Receive Date: 20100913
  Receipt Date: 20100906
  Transmission Date: 20110219
  Serious: Yes (Death)
  Sender: FDA-Public Use
  Company Number: BE-MILLENNIUM PHARMACEUTICALS, INC.-2010-04551

PATIENT

DRUGS (1)
  1. VELCADE [Suspect]
     Indication: MULTIPLE MYELOMA
     Dosage: 1.0 MG/M2, UNK
     Route: 065
     Dates: start: 20100512, end: 20100716

REACTIONS (1)
  - DEATH [None]
